FAERS Safety Report 6189850-1 (Version None)
Quarter: 2009Q2

REPORT INFORMATION
  Report Type: 
  Country: None (occurrence: None)
  Receive Date: 20090514
  Receipt Date: 20090506
  Transmission Date: 20091009
  Serious: Yes (Hospitalization)
  Sender: FDA-Public Use
  Company Number: FR-ASTRAZENECA-2009CG00865

PATIENT
  Age: 835 Month
  Sex: Male

DRUGS (8)
  1. CRESTOR [Suspect]
     Route: 048
     Dates: start: 20070629, end: 20090101
  2. PLAVIX [Concomitant]
     Route: 048
     Dates: end: 20081225
  3. PLAVIX [Concomitant]
     Route: 048
  4. KARDEGIC [Concomitant]
     Route: 048
  5. TRIATEC [Concomitant]
     Route: 048
  6. TRIATEC [Concomitant]
     Route: 048
  7. SECTRAL [Concomitant]
  8. SPECIAFOLDINE [Concomitant]
     Route: 048

REACTIONS (2)
  - BALANCE DISORDER [None]
  - GAIT DISTURBANCE [None]
